FAERS Safety Report 15628502 (Version 1)
Quarter: 2018Q4

REPORT INFORMATION
  Report Type: Spontaneous
  Country: BR (occurrence: BR)
  Receive Date: 20181116
  Receipt Date: 20181116
  Transmission Date: 20190205
  Serious: Yes (Hospitalization)
  Sender: FDA-Public Use
  Company Number: BR-MYLANLABS-2018M1086280

PATIENT
  Age: 37 Year
  Sex: Female

DRUGS (2)
  1. METRONIDAZOLE. [Suspect]
     Active Substance: METRONIDAZOLE
     Indication: UTERINE DISORDER
     Dosage: PRESCRIBED FOR 10 DAYS
     Route: 065
  2. AMPICILLIN [Suspect]
     Active Substance: AMPICILLIN
     Indication: UTERINE DISORDER
     Dosage: PRESCRIBED FOR 10 DAYS
     Route: 065

REACTIONS (5)
  - Pseudomembranous colitis [Recovering/Resolving]
  - Clostridium difficile infection [Recovering/Resolving]
  - Maternal exposure during pregnancy [Recovered/Resolved]
  - Septic shock [Recovering/Resolving]
  - Megacolon [Recovering/Resolving]
